FAERS Safety Report 7475818-1 (Version None)
Quarter: 2011Q2

REPORT INFORMATION
  Report Type: 
  Country: None (occurrence: None)
  Receive Date: 20110512
  Receipt Date: 20110422
  Transmission Date: 20111010
  Serious: No
  Sender: FDA-Public Use
  Company Number: US-B.I. PHARMACEUTICALS,INC./RIDGEFIELD-2011-BP-05098BP

PATIENT
  Age: 73 Year
  Sex: Male

DRUGS (9)
  1. PRADAXA [Suspect]
     Indication: ATRIAL FIBRILLATION
     Dosage: 300 MG
     Route: 048
     Dates: start: 20110130
  2. ASPIRIN [Concomitant]
  3. CENTRUM SILVER [Concomitant]
  4. PLAVIX [Concomitant]
  5. LASIX [Concomitant]
  6. AUGMENTIN [Concomitant]
     Indication: URINARY TRACT INFECTION
  7. FLOMAX [Concomitant]
  8. LEVOTHYROXINE SODIUM [Concomitant]
  9. NAMENDA [Concomitant]

REACTIONS (1)
  - CONFUSIONAL STATE [None]
